FAERS Safety Report 7867296-5 (Version None)
Quarter: 2011Q4

REPORT INFORMATION
  Report Type: 
  Country: None (occurrence: None)
  Receive Date: 20111028
  Receipt Date: 20111019
  Transmission Date: 20120403
  Serious: Yes (Death)
  Sender: FDA-Public Use
  Company Number: GB-ROCHE-1007246

PATIENT
  Sex: Female

DRUGS (5)
  1. DIGOXIN [Concomitant]
  2. LUCENTIS [Suspect]
     Indication: PRODUCT USED FOR UNKNOWN INDICATION
     Route: 050
  3. WARFARIN SODIUM [Concomitant]
  4. SIMVASTATIN [Concomitant]
  5. AMLODIPINE [Concomitant]

REACTIONS (5)
  - CARDIAC ARREST [None]
  - FALL [None]
  - CEREBROVASCULAR ACCIDENT [None]
  - BLOOD SODIUM DECREASED [None]
  - URINARY TRACT INFECTION [None]
